FAERS Safety Report 9479040 (Version 1)
Quarter: 2013Q3

REPORT INFORMATION
  Report Type: Report from Study
  Country: US (occurrence: US)
  Receive Date: 20130827
  Receipt Date: 20130827
  Transmission Date: 20140515
  Serious: Yes (Other)
  Sender: FDA-Public Use
  Company Number: US-JNJFOC-20130810858

PATIENT
  Sex: 0

DRUGS (5)
  1. REMICADE [Suspect]
     Indication: PRODUCT USED FOR UNKNOWN INDICATION
     Route: 042
     Dates: start: 2013
  2. PLAQUENIL [Interacting]
     Indication: PAIN
     Route: 065
  3. MOBIC [Concomitant]
     Route: 065
  4. TRAMADOL [Concomitant]
     Indication: PAIN
     Dosage: REPORTED AS FOR THE LAST 2 YEARS
     Route: 065
     Dates: start: 2010
  5. CYMBALTA [Concomitant]
     Indication: BACK PAIN
     Dosage: START DATE: FOR THE LAST SEVERAL YEARS
     Route: 065

REACTIONS (3)
  - Nerve injury [Unknown]
  - Drug interaction [Unknown]
  - Fatigue [Unknown]
